FAERS Safety Report 7169958-4 (Version None)
Quarter: 2010Q4

REPORT INFORMATION
  Report Type: 
  Country: None (occurrence: None)
  Receive Date: 20101217
  Receipt Date: 20101213
  Transmission Date: 20110411
  Serious: Yes (Hospitalization)
  Sender: FDA-Public Use
  Company Number: FR-BRISTOL-MYERS SQUIBB COMPANY-15442858

PATIENT
  Age: 32 Year
  Sex: Female

DRUGS (5)
  1. REYATAZ [Suspect]
     Indication: HIV INFECTION
     Dates: end: 20100223
  2. COMBIVIR [Concomitant]
     Indication: HIV INFECTION
     Dates: start: 20030101
  3. KALETRA [Concomitant]
     Indication: HIV INFECTION
     Dates: start: 20030101
  4. TRUVADA [Concomitant]
     Indication: HIV INFECTION
  5. NORVIR [Concomitant]
     Indication: HIV INFECTION

REACTIONS (3)
  - CHOLESTASIS [None]
  - CYTOLYTIC HEPATITIS [None]
  - NEPHROLITHIASIS [None]
